FAERS Safety Report 6058268-4 (Version None)
Quarter: 2009Q1

REPORT INFORMATION
  Report Type: 
  Country: None (occurrence: None)
  Receive Date: 20090130
  Receipt Date: 20090127
  Transmission Date: 20090719
  Serious: Yes (Death, Other)
  Sender: FDA-Public Use
  Company Number: FR-WYE-G02916509

PATIENT
  Sex: Male

DRUGS (9)
  1. EFFEXOR [Suspect]
     Route: 048
     Dates: end: 20080221
  2. FARMORUBICIN RD [Suspect]
     Indication: METASTATIC GASTRIC CANCER
     Dosage: 90 MG PER CYCLE
     Route: 042
     Dates: start: 20080208, end: 20080208
  3. XELODA [Suspect]
     Indication: METASTATIC GASTRIC CANCER
     Dosage: 2300 MG TOTAL DAILY
     Route: 048
     Dates: start: 20080208, end: 20080220
  4. SOLU-MEDROL [Concomitant]
     Dosage: UNKNOWN
     Dates: start: 20080208
  5. GRANOCYTE [Suspect]
     Route: 058
     Dates: start: 20080210, end: 20080212
  6. PRIMPERAN TAB [Concomitant]
     Dosage: UNKNOWN
     Dates: start: 20080208
  7. ZOPHREN [Concomitant]
     Dosage: UNKNOWN
     Dates: start: 20080208
  8. OXALIPLATIN [Suspect]
     Indication: METASTATIC GASTRIC CANCER
     Dosage: 234 MG PER CYCLE
     Route: 042
     Dates: start: 20080208, end: 20080208
  9. CADUET [Suspect]
     Route: 048
     Dates: end: 20080219

REACTIONS (4)
  - BILIARY TRACT INFECTION BACTERIAL [None]
  - CHOLANGITIS [None]
  - HAEMOPHILUS INFECTION [None]
  - RENAL FAILURE ACUTE [None]
